FAERS Safety Report 15888295 (Version 1)
Quarter: 2019Q1

REPORT INFORMATION
  Report Type: Report from Study
  Country: MX (occurrence: MX)
  Receive Date: 20190130
  Receipt Date: 20190130
  Transmission Date: 20190417
  Serious: Yes (Other)
  Sender: FDA-Public Use
  Company Number: PHHY2019MX021137

PATIENT
  Age: 58 Year
  Sex: Female
  Weight: 50 kg

DRUGS (2)
  1. ACLASTA [Suspect]
     Active Substance: ZOLEDRONIC ACID
     Indication: LIGAMENT CALCIFICATION
     Dosage: 1 DF, Q12MO
     Route: 042
     Dates: start: 2011
  2. LIBERTRIM [Concomitant]
     Active Substance: TRIMEBUTINE
     Indication: GASTROINTESTINAL MOTILITY DISORDER
     Dosage: 1 DF, UNK
     Route: 048
     Dates: start: 2017

REACTIONS (7)
  - Joint dislocation [Unknown]
  - Neuropathy peripheral [Unknown]
  - Ileus paralytic [Unknown]
  - Spinal pain [Unknown]
  - Contusion [Recovering/Resolving]
  - Product use in unapproved indication [Unknown]
  - Fall [Unknown]

NARRATIVE: CASE EVENT DATE: 20190125
